FAERS Safety Report 8381697-0 (Version None)
Quarter: 2012Q2

REPORT INFORMATION
  Report Type: 
  Country: None (occurrence: None)
  Receive Date: 20120524
  Receipt Date: 20120519
  Transmission Date: 20120825
  Serious: Yes (Life-Threatening)
  Sender: FDA-Public Use
  Company Number: BR-ASTRAZENECA-2012SE32474

PATIENT
  Sex: Female

DRUGS (2)
  1. ATACAND HCT [Suspect]
     Route: 048
  2. ATACAND HCT [Suspect]
     Dosage: 8/ 12.5 MG
     Route: 048

REACTIONS (6)
  - VERTIGO [None]
  - CARDIAC ARREST [None]
  - DIZZINESS [None]
  - DRUG DISPENSING ERROR [None]
  - PALPITATIONS [None]
  - DRY MOUTH [None]
